FAERS Safety Report 9748397 (Version 2)
Quarter: 2014Q1

REPORT INFORMATION
  Report Type: Spontaneous
  Country: DE (occurrence: DE)
  Receive Date: 20131212
  Receipt Date: 20140113
  Transmission Date: 20141002
  Serious: Yes (Other)
  Sender: FDA-Public Use
  Company Number: PHHY2013DE145110

PATIENT
  Sex: Male

DRUGS (2)
  1. DIOVAN [Suspect]
     Indication: HYPERTENSION
     Dosage: 80 MG, UNK
     Dates: start: 2007
  2. ASS [Concomitant]
     Indication: PROPHYLAXIS
     Dosage: 100 MG, PER DAY
     Dates: start: 2007

REACTIONS (1)
  - Polyneuropathy [Not Recovered/Not Resolved]
